FAERS Safety Report 10907940 (Version 1)
Quarter: 2015Q1

REPORT INFORMATION
  Report Type: Spontaneous
  Country: US (occurrence: US)
  Receive Date: 20150312
  Receipt Date: 20150312
  Transmission Date: 20150721
  Serious: No
  Sender: FDA-Public Use
  Company Number: US-INCYTE CORPORATION-2014IN003640

PATIENT
  Age: 79 Year
  Sex: Female
  Weight: 72.57 kg

DRUGS (12)
  1. VICODIN [Concomitant]
     Active Substance: ACETAMINOPHEN\HYDROCODONE BITARTRATE
  2. GABAPENTIN. [Concomitant]
     Active Substance: GABAPENTIN
  3. ASPIRIN. [Concomitant]
     Active Substance: ASPIRIN
  4. TRAZODONE [Concomitant]
     Active Substance: TRAZODONE HYDROCHLORIDE
  5. NAPROSYN [Concomitant]
     Active Substance: NAPROXEN
  6. DIGOXIN. [Concomitant]
     Active Substance: DIGOXIN
  7. TEMAZEPAM. [Concomitant]
     Active Substance: TEMAZEPAM
  8. SYNTHROID [Concomitant]
     Active Substance: LEVOTHYROXINE SODIUM
  9. PRILOSEC [Concomitant]
     Active Substance: OMEPRAZOLE MAGNESIUM
  10. ALPRAZOLAM. [Concomitant]
     Active Substance: ALPRAZOLAM
  11. AMLODIPINE [Concomitant]
     Active Substance: AMLODIPINE BESYLATE
  12. JAKAFI [Suspect]
     Active Substance: RUXOLITINIB
     Dosage: 20 MG, BID
     Route: 048
     Dates: start: 20141117

REACTIONS (3)
  - Nausea [Recovered/Resolved]
  - Pain in jaw [Recovered/Resolved]
  - Influenza like illness [Recovered/Resolved]

NARRATIVE: CASE EVENT DATE: 20141117
